FAERS Safety Report 23966307 (Version 1)
Quarter: 2024Q2

REPORT INFORMATION
  Report Type: Report from Study
  Country: US (occurrence: US)
  Receive Date: 20240612
  Receipt Date: 20240612
  Transmission Date: 20240716
  Serious: Yes (Hospitalization, Other)
  Sender: FDA-Public Use
  Company Number: US-TAKEDA-2022TUS000618

PATIENT
  Sex: Female

DRUGS (20)
  1. TEDUGLUTIDE [Suspect]
     Active Substance: TEDUGLUTIDE
     Indication: Short-bowel syndrome
     Dosage: 1.95 MILLIGRAM, QD
     Route: 058
     Dates: start: 20210902
  2. TEDUGLUTIDE [Suspect]
     Active Substance: TEDUGLUTIDE
     Indication: Short-bowel syndrome
     Dosage: 1.95 MILLIGRAM, QD
     Route: 058
     Dates: start: 20210902
  3. TEDUGLUTIDE [Suspect]
     Active Substance: TEDUGLUTIDE
     Indication: Short-bowel syndrome
     Dosage: 1.95 MILLIGRAM, QD
     Route: 058
     Dates: start: 20210902
  4. TEDUGLUTIDE [Suspect]
     Active Substance: TEDUGLUTIDE
     Indication: Short-bowel syndrome
     Dosage: 1.95 MILLIGRAM, QD
     Route: 058
     Dates: start: 20210902
  5. TEDUGLUTIDE [Suspect]
     Active Substance: TEDUGLUTIDE
     Indication: Investigation
     Dosage: 1.85 MILLIGRAM, QD
     Route: 058
     Dates: start: 20211130
  6. TEDUGLUTIDE [Suspect]
     Active Substance: TEDUGLUTIDE
     Indication: Investigation
     Dosage: 1.85 MILLIGRAM, QD
     Route: 058
     Dates: start: 20211130
  7. TEDUGLUTIDE [Suspect]
     Active Substance: TEDUGLUTIDE
     Indication: Investigation
     Dosage: 1.85 MILLIGRAM, QD
     Route: 058
     Dates: start: 20211130
  8. TEDUGLUTIDE [Suspect]
     Active Substance: TEDUGLUTIDE
     Indication: Investigation
     Dosage: 1.85 MILLIGRAM, QD
     Route: 058
     Dates: start: 20211130
  9. TEDUGLUTIDE [Suspect]
     Active Substance: TEDUGLUTIDE
     Dosage: 0.19 MILLILITER, QD
     Route: 058
     Dates: start: 202111
  10. TEDUGLUTIDE [Suspect]
     Active Substance: TEDUGLUTIDE
     Dosage: 0.19 MILLILITER, QD
     Route: 058
     Dates: start: 202111
  11. TEDUGLUTIDE [Suspect]
     Active Substance: TEDUGLUTIDE
     Dosage: 0.19 MILLILITER, QD
     Route: 058
     Dates: start: 202111
  12. TEDUGLUTIDE [Suspect]
     Active Substance: TEDUGLUTIDE
     Dosage: 0.19 MILLILITER, QD
     Route: 058
     Dates: start: 202111
  13. TEDUGLUTIDE [Suspect]
     Active Substance: TEDUGLUTIDE
     Dosage: 1.95 MILLIGRAM, QD
     Route: 058
     Dates: start: 202112
  14. TEDUGLUTIDE [Suspect]
     Active Substance: TEDUGLUTIDE
     Dosage: 1.95 MILLIGRAM, QD
     Route: 058
     Dates: start: 202112
  15. TEDUGLUTIDE [Suspect]
     Active Substance: TEDUGLUTIDE
     Dosage: 1.95 MILLIGRAM, QD
     Route: 058
     Dates: start: 202112
  16. TEDUGLUTIDE [Suspect]
     Active Substance: TEDUGLUTIDE
     Dosage: 1.95 MILLIGRAM, QD
     Route: 058
     Dates: start: 202112
  17. TEDUGLUTIDE [Suspect]
     Active Substance: TEDUGLUTIDE
     Dosage: 0.19 MILLILITER, QD
     Route: 058
  18. TEDUGLUTIDE [Suspect]
     Active Substance: TEDUGLUTIDE
     Dosage: 0.19 MILLILITER, QD
     Route: 058
  19. TEDUGLUTIDE [Suspect]
     Active Substance: TEDUGLUTIDE
     Dosage: 0.19 MILLILITER, QD
     Route: 058
  20. TEDUGLUTIDE [Suspect]
     Active Substance: TEDUGLUTIDE
     Dosage: 0.19 MILLILITER, QD
     Route: 058

REACTIONS (10)
  - Parkinson^s disease [Unknown]
  - Fistula inflammation [Unknown]
  - Stoma site inflammation [Unknown]
  - Blood magnesium decreased [Unknown]
  - Wound [Unknown]
  - Fistula discharge [Recovering/Resolving]
  - Weight increased [Unknown]
  - Weight decreased [Unknown]
  - Gastrointestinal stoma complication [Not Recovered/Not Resolved]
  - Decreased appetite [Unknown]
